FAERS Safety Report 7206371 (Version 6)
Quarter: 2013Q4

REPORT INFORMATION
  Report Type: Spontaneous
  Country: US (occurrence: US)
  Receive Date: 20091209
  Receipt Date: 20131127
  Transmission Date: 20140711
  Serious: Yes (Hospitalization, Other)
  Sender: FDA-Public Use
  Company Number: US-BAYER-200941598NA

PATIENT
  Age: 26 Year
  Sex: Female
  Weight: 118 kg

DRUGS (19)
  1. YAZ [Suspect]
     Indication: PRODUCT USED FOR UNKNOWN INDICATION
     Route: 048
     Dates: start: 200906, end: 201003
  2. YASMIN [Suspect]
     Indication: PRODUCT USED FOR UNKNOWN INDICATION
     Route: 048
     Dates: start: 200906, end: 201003
  3. OCELLA [Suspect]
     Indication: PRODUCT USED FOR UNKNOWN INDICATION
     Route: 048
     Dates: start: 200906, end: 201003
  4. ZOLOFT [Concomitant]
     Route: 048
  5. FLAGYL [Concomitant]
  6. PRILOSEC [Concomitant]
  7. CIPRO [Concomitant]
  8. TYLENOL [Concomitant]
     Indication: HEADACHE
     Dates: start: 2009
  9. PERCOCET [Concomitant]
     Indication: PAIN
     Dosage: 5/325 MG
     Dates: start: 20090801
  10. VISTARIL [Concomitant]
     Indication: NAUSEA
     Dates: start: 20090801
  11. PHENERGAN [Concomitant]
     Dates: start: 20090811
  12. VICODIN [Concomitant]
     Indication: PAIN
     Dosage: 5/500 MG
     Dates: start: 20090811
  13. TYLENOL ACHES + STRAINS [Concomitant]
     Dates: start: 2009
  14. OXYCOCET [Concomitant]
     Dosage: 5/325 MG
     Dates: start: 20090801
  15. HYDROCODONE [Concomitant]
     Dosage: 5/500 MG
  16. ZOFRAN [Concomitant]
     Dosage: 4 MG, UNK
     Route: 042
     Dates: start: 20090727, end: 20090811
  17. DILAUDID [Concomitant]
     Dosage: 0.5-1.0MG
     Route: 042
     Dates: start: 20090727, end: 20090811
  18. KETOROLAC [Concomitant]
     Dosage: 30 MG, UNK
     Dates: start: 20090727, end: 20090811
  19. TRAZODONE [Concomitant]
     Dosage: 50 MG, HS
     Dates: start: 20090817

REACTIONS (9)
  - Cholecystitis chronic [None]
  - Cholelithiasis [Unknown]
  - Gallbladder pain [Unknown]
  - Abdominal pain upper [Unknown]
  - Abdominal pain [Unknown]
  - Nausea [Unknown]
  - Vomiting [Unknown]
  - Pyrexia [Unknown]
  - Chills [Unknown]
